FAERS Safety Report 9445647 (Version 1)
Quarter: 2013Q3

REPORT INFORMATION
  Report Type: Spontaneous
  Country: CN (occurrence: CN)
  Receive Date: 20130807
  Receipt Date: 20130807
  Transmission Date: 20140515
  Serious: Yes (Other)
  Sender: FDA-Public Use
  Company Number: CN-ABBOTT-13P-035-1130200-00

PATIENT
  Sex: Male

DRUGS (1)
  1. ENANTONE [Suspect]
     Indication: PROSTATE CANCER
     Dates: start: 2010

REACTIONS (2)
  - Bone pain [Not Recovered/Not Resolved]
  - Metastases to bone [Not Recovered/Not Resolved]
